FAERS Safety Report 4534057-4 (Version None)
Quarter: 2004Q4

REPORT INFORMATION
  Report Type: 
  Country: None (occurrence: None)
  Receive Date: 20041221
  Receipt Date: 20041221
  Transmission Date: 20050328
  Serious: Yes (Other)
  Sender: FDA-Public Use
  Company Number: None

PATIENT
  Age: 51 Year
  Sex: Male
  Weight: 91.6 kg

DRUGS (6)
  1. BUPROPION [Suspect]
  2. GABAPENTIN [Concomitant]
  3. PRAZOSIN HCL [Concomitant]
  4. KETOCONAZOLE [Concomitant]
  5. KETOCONAZOLE 2% CREAM [Concomitant]
  6. HYDROCORTISONE [Concomitant]

REACTIONS (1)
  - RASH [None]
